FAERS Safety Report 8914566 (Version 1)
Quarter: 2012Q4

REPORT INFORMATION
  Report Type: 
  Country: SE (occurrence: SE)
  Receive Date: 20121119
  Receipt Date: 20121119
  Transmission Date: 20130627
  Serious: Yes (Hospitalization)
  Sender: FDA-Public Use
  Company Number: SE-PFIZER INC-2012286337

PATIENT
  Age: 34 Year
  Sex: Female
  Weight: 143.5 kg

DRUGS (4)
  1. GENOTROPIN [Suspect]
     Dosage: 0.8 mg, 1x/day,7 injections/week
     Route: 058
     Dates: start: 19990503
  2. BUDESONIDE [Concomitant]
     Indication: ASTHMA
     Dosage: UNK
     Dates: start: 19931101
  3. SALMETEROL [Concomitant]
     Indication: ASTHMA
     Dosage: UNK
     Dates: start: 19931101
  4. TERBUTALINE [Concomitant]
     Indication: ASTHMA
     Dosage: UNK
     Dates: start: 19931101

REACTIONS (1)
  - Neuropathy peripheral [Unknown]
